FAERS Safety Report 8958696 (Version 3)
Quarter: 2013Q3

REPORT INFORMATION
  Report Type: Spontaneous
  Country: US (occurrence: US)
  Receive Date: 20121212
  Receipt Date: 20130820
  Transmission Date: 20140515
  Serious: Yes (Hospitalization, Other)
  Sender: FDA-Public Use
  Company Number: US-MERCK-1212USA003462

PATIENT
  Age: 64 Year
  Sex: Female
  Weight: 80.73 kg

DRUGS (9)
  1. JANUMET [Suspect]
     Indication: DIABETES MELLITUS
     Dosage: UNK
     Route: 048
     Dates: start: 2009, end: 20121204
  2. NOVOLOG [Concomitant]
  3. INSULIN [Concomitant]
     Indication: TYPE 2 DIABETES MELLITUS
     Dosage: UNK
     Dates: start: 2011
  4. LIPITOR [Concomitant]
  5. PLAVIX [Concomitant]
  6. TRICOR (ADENOSINE) [Concomitant]
  7. AMLODIPINE [Concomitant]
  8. ZETIA [Concomitant]
     Route: 048
  9. FENOFIBRATE [Concomitant]
     Indication: BLOOD TRIGLYCERIDES

REACTIONS (8)
  - Pancreatitis acute [Recovered/Resolved]
  - Polydipsia [Unknown]
  - Polyuria [Unknown]
  - Vision blurred [Unknown]
  - Headache [Unknown]
  - Fatigue [Unknown]
  - Dizziness [Unknown]
  - Chest pain [Unknown]
